FAERS Safety Report 6847927-9 (Version None)
Quarter: 2010Q3

REPORT INFORMATION
  Report Type: 
  Country: None (occurrence: None)
  Receive Date: 20100716
  Receipt Date: 20100706
  Transmission Date: 20110219
  Serious: Yes (Hospitalization)
  Sender: FDA-Public Use
  Company Number: US-PFIZER INC-2010074670

PATIENT
  Sex: Female

DRUGS (32)
  1. ADRIAMYCIN PFS [Suspect]
     Indication: ENDOMETRIAL CANCER
     Dosage: 120 MG, CYCLIC
     Route: 042
     Dates: start: 20100525, end: 20100525
  2. ATIVAN [Concomitant]
     Dosage: UNK
     Dates: start: 20100420
  3. COLACE [Concomitant]
     Dosage: UNK
     Dates: start: 20080101
  4. AMBIEN [Concomitant]
     Dosage: UNK
     Dates: start: 20090101
  5. PERCOCET [Concomitant]
     Dosage: UNK
     Dates: start: 20080101
  6. CUMADIN [Concomitant]
     Dosage: UNK
     Dates: start: 20080101
  7. TRICOR [Concomitant]
     Dosage: UNK
     Dates: start: 20040101
  8. SITAGLIPTIN PHOSPHATE [Concomitant]
     Dosage: UNK
     Dates: start: 20080101
  9. AMLODIPINE/VALSARTAN [Concomitant]
     Dosage: UNK
     Dates: start: 20070101
  10. SYNTHROID [Concomitant]
     Dosage: UNK
     Dates: start: 20060101
  11. LOVAZA [Concomitant]
     Dosage: UNK
     Dates: start: 20050101
  12. METOPROLOL [Concomitant]
     Dosage: UNK
     Dates: start: 20080101
  13. ALENDRONATE SODIUM [Concomitant]
     Dosage: UNK
     Dates: start: 20050101
  14. CLARITIN [Concomitant]
     Dosage: UNK
     Dates: start: 20040101
  15. VITAMIN D [Concomitant]
     Dosage: UNK
     Dates: start: 20050101
  16. TESSALON [Concomitant]
     Dosage: UNK
     Dates: start: 20100511
  17. ADVAIR DISKUS 100/50 [Concomitant]
     Dosage: UNK
     Dates: start: 20100511
  18. MEGACE [Concomitant]
     Dosage: UNK
     Dates: start: 20100521
  19. LEXAPRO [Concomitant]
     Dosage: UNK
     Dates: start: 20100525
  20. COMPAZINE [Concomitant]
     Dosage: UNK
     Dates: start: 20100525
  21. ZOFRAN [Concomitant]
     Dosage: UNK
     Dates: start: 20100525
  22. PREDNISONE [Concomitant]
     Dosage: UNK
     Dates: start: 20100601
  23. ALTEPLASE [Concomitant]
     Dosage: UNK
     Dates: start: 20100525, end: 20100525
  24. NORMAL SALINE [Concomitant]
     Dosage: UNK
     Dates: start: 20100527
  25. LEVAQUIN [Concomitant]
     Dosage: UNK
     Dates: start: 20100601
  26. DIFLUCAN [Concomitant]
     Dosage: UNK
     Dates: start: 20100603, end: 20100603
  27. NYSTATIN [Concomitant]
     Dosage: UNK
     Dates: start: 20100603
  28. MAALOX [Concomitant]
     Dosage: UNK
     Dates: start: 20100603
  29. LIDOCAINE [Concomitant]
     Dosage: UNK
     Dates: start: 20100603
  30. TYLENOL [Concomitant]
     Dosage: UNK
     Dates: start: 20100603, end: 20100603
  31. DECADRON [Concomitant]
     Dosage: UNK
     Dates: start: 20100603, end: 20100603
  32. LASIX [Concomitant]
     Dosage: UNK
     Dates: start: 20100603, end: 20100603

REACTIONS (4)
  - DYSPNOEA [None]
  - INTERNATIONAL NORMALISED RATIO INCREASED [None]
  - NEUTROPENIA [None]
  - PNEUMONIA [None]
